FAERS Safety Report 9494847 (Version 1)
Quarter: 2013Q3

REPORT INFORMATION
  Report Type: Spontaneous
  Country: US (occurrence: US)
  Receive Date: 20130903
  Receipt Date: 20130903
  Transmission Date: 20140515
  Serious: Yes (Other)
  Sender: FDA-Public Use
  Company Number: US-ROXANE LABORATORIES, INC.-2013-RO-01444RO

PATIENT
  Sex: Male
  Weight: 1.9 kg

DRUGS (6)
  1. DEXAMETHASONE [Suspect]
     Indication: FOETAL EXPOSURE DURING PREGNANCY
     Route: 064
  2. ROMIPLOSTIM [Suspect]
     Indication: FOETAL EXPOSURE DURING PREGNANCY
     Route: 064
  3. IMMUNOGLOBULIN [Suspect]
     Indication: FOETAL EXPOSURE DURING PREGNANCY
     Route: 064
  4. MISOPROSTOL [Suspect]
     Indication: FOETAL EXPOSURE DURING PREGNANCY
     Route: 064
  5. OXYTOCIN [Suspect]
     Indication: FOETAL EXPOSURE DURING PREGNANCY
     Route: 064
  6. HYDROCORTISONE [Suspect]
     Indication: FOETAL EXPOSURE DURING PREGNANCY
     Route: 064

REACTIONS (6)
  - Premature baby [Recovered/Resolved]
  - Low birth weight baby [Unknown]
  - Thrombocytopenia neonatal [Recovered/Resolved]
  - Intraventricular haemorrhage [Recovered/Resolved]
  - Adrenal insufficiency [Recovered/Resolved]
  - Phimosis [Unknown]
